FAERS Safety Report 6467703-9 (Version None)
Quarter: 2009Q4

REPORT INFORMATION
  Report Type: 
  Country: None (occurrence: None)
  Receive Date: 20091202
  Receipt Date: 20091124
  Transmission Date: 20100525
  Serious: Yes (Hospitalization)
  Sender: FDA-Public Use
  Company Number: PHHO2009FR05205

PATIENT
  Sex: Female
  Weight: 43.4 kg

DRUGS (9)
  1. ZOLEDRONATE T29581+SOLINJ+BM [Suspect]
     Indication: BONE SARCOMA
     Dosage: 4 MG, UNK
     Route: 042
     Dates: start: 20081110
  2. METHOTREXATE [Suspect]
     Dosage: 17100 MG, UNK
     Route: 042
     Dates: start: 20081110
  3. METHOTREXATE [Suspect]
     Dosage: 13300 MG, UNK
     Dates: start: 20090609
  4. VITAMIN D [Concomitant]
  5. CALCIUM [Concomitant]
  6. VEPESID [Concomitant]
  7. HOLOXAN [Concomitant]
  8. SPASFON [Concomitant]
     Dosage: UNK
     Dates: start: 20081223
  9. ONDANSETRON [Concomitant]
     Indication: ANTIEMETIC SUPPORTIVE CARE
     Dosage: UNK
     Dates: start: 20090316, end: 20090420

REACTIONS (2)
  - CHILLS [None]
  - HYPERTHERMIA [None]
